FAERS Safety Report 6385413-3 (Version None)
Quarter: 2009Q4

REPORT INFORMATION
  Report Type: 
  Country: None (occurrence: None)
  Receive Date: 20091002
  Receipt Date: 20080828
  Transmission Date: 20100525
  Serious: No
  Sender: FDA-Public Use
  Company Number: US-ASTRAZENECA-2008UW17765

PATIENT
  Age: 81 Year
  Sex: Female
  Weight: 59 kg

DRUGS (5)
  1. ARIMIDEX [Suspect]
     Indication: BREAST CANCER
     Route: 048
     Dates: start: 20060801
  2. METOPROLOL [Concomitant]
  3. LASIX [Concomitant]
  4. COUMADIN [Concomitant]
  5. UNSPECIFIED [Concomitant]
     Indication: PAIN

REACTIONS (4)
  - ALOPECIA [None]
  - BONE PAIN [None]
  - GAIT DISTURBANCE [None]
  - RASH PRURITIC [None]
